FAERS Safety Report 6289575-8 (Version None)
Quarter: 2009Q3

REPORT INFORMATION
  Report Type: 
  Country: None (occurrence: None)
  Receive Date: 20090730
  Receipt Date: 20090629
  Transmission Date: 20100115
  Serious: No
  Sender: FDA-Public Use
  Company Number: US-BAYER-200925253NA

PATIENT
  Age: 54 Year
  Sex: Male

DRUGS (1)
  1. CIPRO [Suspect]
     Indication: PROSTATIC OPERATION
     Dates: start: 20080101

REACTIONS (2)
  - TENDON PAIN [None]
  - TENDONITIS [None]
